FAERS Safety Report 23403474 (Version 1)
Quarter: 2024Q1

REPORT INFORMATION
  Report Type: Spontaneous
  Country: US (occurrence: US)
  Receive Date: 20240116
  Receipt Date: 20240116
  Transmission Date: 20240410
  Serious: No
  Sender: FDA-Public Use
  Company Number: US-STRIDES ARCOLAB LIMITED-2023SP010259

PATIENT
  Age: 53 Year
  Sex: Female

DRUGS (16)
  1. ACETAZOLAMIDE [Suspect]
     Active Substance: ACETAZOLAMIDE
     Indication: Glaucoma
     Dosage: UNK
     Route: 065
  2. FLUOROURACIL [Concomitant]
     Active Substance: FLUOROURACIL
     Indication: Squamous cell carcinoma of skin
     Dosage: UNK
     Route: 065
  3. AZATHIOPRINE [Concomitant]
     Active Substance: AZATHIOPRINE
     Indication: Squamous cell carcinoma of skin
     Dosage: UNK
     Route: 065
  4. AZATHIOPRINE [Concomitant]
     Active Substance: AZATHIOPRINE
     Indication: Uveitis
  5. BRIMONIDINE [Concomitant]
     Active Substance: BRIMONIDINE TARTRATE
     Indication: Glaucoma
     Dosage: UNK
     Route: 065
  6. DORZOLAMIDE\TIMOLOL [Concomitant]
     Active Substance: DORZOLAMIDE\TIMOLOL
     Indication: Glaucoma
     Dosage: UNK
     Route: 065
  7. HUMIRA [Concomitant]
     Active Substance: ADALIMUMAB
     Indication: Uveitis
     Dosage: 40 MILLIGRAM EVERY 2 WEEKS
     Route: 058
  8. KENALOG [Concomitant]
     Active Substance: TRIAMCINOLONE ACETONIDE
     Indication: Eye inflammation
     Dosage: 40 MILLIGRAM (SUB-TENON INJECTION IN OS)
     Route: 065
  9. LIBTAYO [Concomitant]
     Active Substance: CEMIPLIMAB-RWLC
     Indication: Squamous cell carcinoma of skin
     Dosage: UNK
     Route: 065
  10. LATANOPROST [Concomitant]
     Active Substance: LATANOPROST
     Indication: Glaucoma
     Dosage: UNK
     Route: 065
  11. METHOTREXATE [Concomitant]
     Active Substance: METHOTREXATE
     Indication: Uveitis
     Dosage: UNK
     Route: 065
  12. MYCOPHENOLATE MOFETIL [Concomitant]
     Active Substance: MYCOPHENOLATE MOFETIL
     Indication: Uveitis
     Dosage: 500 MILLIGRAM DAILY
     Route: 065
  13. NETARSUDIL [Concomitant]
     Active Substance: NETARSUDIL
     Indication: Glaucoma
     Dosage: UNK
     Route: 065
  14. PREDNISONE [Concomitant]
     Active Substance: PREDNISONE
     Indication: Squamous cell carcinoma of skin
     Dosage: 80 MILLIGRAM PER DAY
     Route: 048
  15. PREDNISONE [Concomitant]
     Active Substance: PREDNISONE
     Indication: Uveitis
     Dosage: UNK (RESUMED)
     Route: 065
  16. PREDNISONE [Concomitant]
     Active Substance: PREDNISONE
     Indication: Papilloedema

REACTIONS (1)
  - Paraesthesia [Unknown]
